FAERS Safety Report 4955193-4 (Version None)
Quarter: 2006Q1

REPORT INFORMATION
  Report Type: 
  Country: None (occurrence: None)
  Receive Date: 20060328
  Receipt Date: 20060316
  Transmission Date: 20060701
  Serious: Yes (Death)
  Sender: FDA-Public Use
  Company Number: US-JNJFOC-20060304260

PATIENT
  Sex: Female

DRUGS (19)
  1. INFLIXIMAB [Suspect]
     Indication: RHEUMATOID ARTHRITIS
     Route: 042
     Dates: start: 20000529, end: 20050307
  2. CELEXA [Concomitant]
  3. FOLIC ACID [Concomitant]
  4. MULTI-VITAMIN [Concomitant]
  5. MULTI-VITAMIN [Concomitant]
  6. MULTI-VITAMIN [Concomitant]
  7. MULTI-VITAMIN [Concomitant]
  8. MULTI-VITAMIN [Concomitant]
  9. MULTI-VITAMIN [Concomitant]
  10. MULTI-VITAMIN [Concomitant]
  11. MULTI-VITAMIN [Concomitant]
  12. PREVACID [Concomitant]
  13. TYLENOL W/ CODEINE [Concomitant]
  14. TYLENOL W/ CODEINE [Concomitant]
  15. METHOTREXATE [Concomitant]
  16. GLUCOSAMINE/CHONDROITIN [Concomitant]
  17. GLUCOSAMINE/CHONDROITIN [Concomitant]
  18. GLUCOSAMINE/CHONDROITIN [Concomitant]
  19. GLUCOSAMINE/CHONDROITIN [Concomitant]

REACTIONS (2)
  - GASTROENTERITIS [None]
  - PANCREATIC CARCINOMA [None]
